FAERS Safety Report 4744203-5 (Version None)
Quarter: 2005Q3

REPORT INFORMATION
  Report Type: 
  Country: None (occurrence: None)
  Receive Date: 20050812
  Receipt Date: 20050526
  Transmission Date: 20060218
  Serious: Yes (Other)
  Sender: FDA-Public Use
  Company Number: PHEH2005US05972

PATIENT
  Age: 54 Year
  Sex: Male

DRUGS (3)
  1. ZOMETA [Suspect]
     Indication: METASTASES TO BONE
     Dosage: 4 MG MONTHLY
     Dates: start: 20030128, end: 20050523
  2. TAXOTERE [Concomitant]
     Dates: start: 20040101
  3. DECADRON /NET/ [Concomitant]

REACTIONS (6)
  - ASEPTIC NECROSIS BONE [None]
  - BONE DISORDER [None]
  - IMPAIRED HEALING [None]
  - NO THERAPEUTIC RESPONSE [None]
  - OSTEONECROSIS [None]
  - TOOTH EXTRACTION [None]
